FAERS Safety Report 24767377 (Version 1)
Quarter: 2024Q4

REPORT INFORMATION
  Report Type: Spontaneous
  Country: IN (occurrence: IN)
  Receive Date: 20241223
  Receipt Date: 20241223
  Transmission Date: 20250115
  Serious: Yes (Death, Other)
  Sender: DR REDDYS
  Company Number: IN-RDY-LIT/IND/24/0018585

PATIENT
  Age: 35 Year
  Sex: Male

DRUGS (2)
  1. ATORVASTATIN [Suspect]
     Active Substance: ATORVASTATIN
     Indication: Type IIa hyperlipidaemia
  2. STREPTOKINASE [Concomitant]
     Active Substance: STREPTOKINASE
     Indication: Thrombolysis

REACTIONS (2)
  - Condition aggravated [Fatal]
  - Drug ineffective [Fatal]
